FAERS Safety Report 10676400 (Version 2)
Quarter: 2015Q2

REPORT INFORMATION
  Report Type: Spontaneous
  Country: FR (occurrence: FR)
  Receive Date: 20141226
  Receipt Date: 20150424
  Transmission Date: 20150821
  Serious: Yes (Life-Threatening, Hospitalization, Disabling)
  Sender: FDA-Public Use
  Company Number: FR-ASTRAZENECA-2014SE98746

PATIENT
  Age: 49 Year
  Sex: Female
  Weight: 65 kg

DRUGS (4)
  1. HEPARIN [Suspect]
     Active Substance: HEPARIN SODIUM
     Indication: ACUTE CORONARY SYNDROME
     Route: 065
     Dates: start: 20141203, end: 20141204
  2. BRILIQUE [Suspect]
     Active Substance: TICAGRELOR
     Indication: ACUTE CORONARY SYNDROME
     Route: 048
     Dates: start: 20141203, end: 20141204
  3. KARDEGIC [Suspect]
     Active Substance: ASPIRIN LYSINE
     Indication: ACUTE CORONARY SYNDROME
     Route: 065
     Dates: start: 20141203
  4. ASPIRINE [Suspect]
     Active Substance: ASPIRIN
     Indication: ACUTE CORONARY SYNDROME
     Route: 065
     Dates: start: 2014, end: 2014

REACTIONS (3)
  - Thrombosis in device [Recovering/Resolving]
  - Therapy cessation [Unknown]
  - Haemorrhage intracranial [Recovering/Resolving]

NARRATIVE: CASE EVENT DATE: 2014
